FAERS Safety Report 25837971 (Version 8)
Quarter: 2025Q4

REPORT INFORMATION
  Report Type: Spontaneous
  Country: EU (occurrence: EU)
  Receive Date: 20250923
  Receipt Date: 20251208
  Transmission Date: 20260117
  Serious: Yes (Life-Threatening, Hospitalization, Other)
  Sender: MYLAN
  Company Number: EU-PPH-29930-1

PATIENT
  Age: 85 Year
  Sex: Male

DRUGS (16)
  1. NORVASC [Suspect]
     Active Substance: AMLODIPINE BESYLATE
     Indication: Hypertension
     Dosage: 5 MILLIGRAM, BID, 5 MG TWICE DAILY (MORNINGS AND EVENINGS) FOR 40 YEARS
     Dates: end: 202408
  2. NORVASC [Suspect]
     Active Substance: AMLODIPINE BESYLATE
     Indication: Pulmonary hypertension
  3. METOPROLOL SUCCINATE [Suspect]
     Active Substance: METOPROLOL SUCCINATE
     Indication: Hypertension
     Dosage: 50 MILLIGRAM, QD, 50 MG ONCE MORNINGS FOR 40 YEARS
     Dates: end: 202408
  4. METOPROLOL SUCCINATE [Suspect]
     Active Substance: METOPROLOL SUCCINATE
     Indication: Pulmonary hypertension
  5. LISINOPRIL [Suspect]
     Active Substance: LISINOPRIL
     Indication: Hypertension
     Dosage: 5 MILLIGRAM, QD, ONCE EVENINGS
     Dates: end: 202408
  6. LISINOPRIL [Suspect]
     Active Substance: LISINOPRIL
     Indication: Pulmonary hypertension
  7. TORSEMIDE [Suspect]
     Active Substance: TORSEMIDE
     Indication: Hypertension
     Dosage: 10 MILLIGRAM, QD, ONCE MORNINGS
  8. TORSEMIDE [Suspect]
     Active Substance: TORSEMIDE
     Indication: Pulmonary hypertension
  9. EDOXABAN TOSYLATE [Concomitant]
     Active Substance: EDOXABAN TOSYLATE
     Indication: Anticoagulant therapy
     Dosage: 30 MG, HALF A TABLET EVENINGS
  10. EDOXABAN TOSYLATE [Concomitant]
     Active Substance: EDOXABAN TOSYLATE
     Dosage: 0.5 DOSAGE FORM, QD
  11. PANTOPRAZOLE SODIUM [Concomitant]
     Active Substance: PANTOPRAZOLE SODIUM
     Indication: Product used for unknown indication
     Dosage: 40 MILLIGRAM, QD, ONCE MORNINGS
  12. METILDIGOXIN [Concomitant]
     Active Substance: METILDIGOXIN
     Indication: Hypertension
     Dosage: 0.1 MILLIGRAM, QD, ONCE MORNINGS
  13. METILDIGOXIN [Concomitant]
     Active Substance: METILDIGOXIN
     Indication: Pulmonary hypertension
  14. NADROPARIN CALCIUM [Concomitant]
     Active Substance: NADROPARIN CALCIUM
     Indication: Anticoagulant therapy
     Dosage: 0.4 MILLILITER
  15. LIDOCAINE [Concomitant]
     Active Substance: LIDOCAINE
     Indication: Local anaesthesia
     Dosage: 2 PERCENT
  16. LISINOPRIL [Concomitant]
     Active Substance: LISINOPRIL
     Dosage: 5 MILLIGRAM, QD

REACTIONS (15)
  - Basal cell carcinoma [Unknown]
  - Malignant melanoma [Unknown]
  - Squamous cell carcinoma [Unknown]
  - Malignant melanoma stage I [Unknown]
  - Carcinogenicity [Unknown]
  - Photosensitivity reaction [Unknown]
  - Manufacturing materials contamination [Unknown]
  - Skin lesion [Recovered/Resolved]
  - Haemoglobin decreased [Unknown]
  - Haematocrit decreased [Unknown]
  - Mean cell haemoglobin decreased [Unknown]
  - Red blood cell sedimentation rate increased [Unknown]
  - High density lipoprotein decreased [Unknown]
  - Multiple drug therapy [Unknown]
  - Lymphocyte count decreased [Unknown]

NARRATIVE: CASE EVENT DATE: 20230307
